FAERS Safety Report 14831558 (Version 1)
Quarter: 2018Q2

REPORT INFORMATION
  Report Type: Spontaneous
  Country: FR (occurrence: FR)
  Receive Date: 20180501
  Receipt Date: 20180501
  Transmission Date: 20180711
  Serious: Yes (Hospitalization)
  Sender: FDA-Public Use
  Company Number: FR-ROCHE-2116895

PATIENT
  Age: 58 Year
  Sex: Female
  Weight: 72 kg

DRUGS (1)
  1. HERCEPTIN [Suspect]
     Active Substance: TRASTUZUMAB
     Indication: BREAST CANCER METASTATIC
     Dosage: MOST RECENT DOSE OF TRASTUZUMAB ON 05/DEC/2017.
     Route: 042
     Dates: start: 201203

REACTIONS (1)
  - Pleuropericarditis [Recovered/Resolved]

NARRATIVE: CASE EVENT DATE: 20171225
